FAERS Safety Report 12448119 (Version 1)
Quarter: 2016Q2

REPORT INFORMATION
  Report Type: Report from Study
  Country: US (occurrence: US)
  Receive Date: 20160608
  Receipt Date: 20160608
  Transmission Date: 20160815
  Serious: Yes (Other)
  Sender: FDA-Public Use
  Company Number: US-MDT-ADR-2016-01032

PATIENT
  Age: 53 Year
  Sex: Male

DRUGS (2)
  1. COMPOUNDED BACLOFEN [Suspect]
     Active Substance: BACLOFEN
     Dosage: 352.83 MCG/DAY
     Route: 037
  2. MORPHINE [Suspect]
     Active Substance: MORPHINE
     Dosage: 20.755 MG/DAY
     Route: 037

REACTIONS (4)
  - Pain [Recovered/Resolved]
  - No therapeutic response [Recovered/Resolved]
  - Hypoaesthesia [Recovered/Resolved]
  - Road traffic accident [Recovered/Resolved]

NARRATIVE: CASE EVENT DATE: 20110714
